FAERS Safety Report 8243825-7 (Version None)
Quarter: 2012Q1

REPORT INFORMATION
  Report Type: 
  Country: None (occurrence: None)
  Receive Date: 20120329
  Receipt Date: 20120327
  Transmission Date: 20120608
  Serious: Yes (Other)
  Sender: FDA-Public Use
  Company Number: US-PFIZER INC-2012078678

PATIENT
  Sex: Male
  Weight: 131.5 kg

DRUGS (8)
  1. BYETTA [Concomitant]
     Dosage: 10 UG, 2X/DAY
  2. LISINOPRIL [Concomitant]
     Dosage: 2.5 MG, 1X/DAY
  3. DETROL LA [Concomitant]
     Dosage: 4 MG, 1X/DAY
  4. LIPITOR [Suspect]
     Indication: BLOOD CHOLESTEROL INCREASED
     Dosage: 40 MG, 1X/DAY
     Route: 048
     Dates: start: 20120209, end: 20120315
  5. IBUPROFEN [Concomitant]
     Dosage: 800 MG, 2X/DAY
  6. GLYBURIDE [Concomitant]
     Dosage: 5 MG, 1X/DAY
  7. TAMSULOSIN [Concomitant]
     Dosage: 0.4 MG, 2X/DAY
  8. NASONEX [Concomitant]
     Dosage: 50 UG, 1X/DAY

REACTIONS (3)
  - LOW DENSITY LIPOPROTEIN DECREASED [None]
  - BLOOD TRIGLYCERIDES INCREASED [None]
  - HIGH DENSITY LIPOPROTEIN DECREASED [None]
